FAERS Safety Report 17074917 (Version 1)
Quarter: 2019Q4

REPORT INFORMATION
  Report Type: Report from Study
  Country: ES (occurrence: ES)
  Receive Date: 20191126
  Receipt Date: 20191126
  Transmission Date: 20200122
  Serious: Yes (Other)
  Sender: FDA-Public Use
  Company Number: ES-CLINIGEN GROUP PLC/ CLINIGEN HEALTHCARE LTD-ES-CLGN-19-00634

PATIENT
  Age: 43 Year
  Sex: Female
  Weight: 40 kg

DRUGS (3)
  1. FOSCAVIR [Suspect]
     Active Substance: FOSCARNET SODIUM
     Indication: CYTOMEGALOVIRUS INFECTION
     Route: 042
     Dates: start: 20190916, end: 20191004
  2. TACROLIMUS. [Concomitant]
     Active Substance: TACROLIMUS
     Indication: PROPHYLAXIS AGAINST GRAFT VERSUS HOST DISEASE
  3. METOTREXATE [Concomitant]
     Active Substance: METHOTREXATE SODIUM
     Indication: PROPHYLAXIS AGAINST GRAFT VERSUS HOST DISEASE

REACTIONS (3)
  - Incorrect product administration duration [Unknown]
  - Treatment failure [Unknown]
  - Ejection fraction decreased [Recovering/Resolving]

NARRATIVE: CASE EVENT DATE: 20191017
